FAERS Safety Report 24032342 (Version 1)
Quarter: 2024Q2

REPORT INFORMATION
  Report Type: Spontaneous
  Country: JP (occurrence: JP)
  Receive Date: 20240630
  Receipt Date: 20240630
  Transmission Date: 20240716
  Serious: Yes (Hospitalization, Other)
  Sender: FDA-Public Use
  Company Number: JP-ABBVIE-5817121

PATIENT
  Age: 70 Year
  Sex: Female

DRUGS (1)
  1. RINVOQ [Suspect]
     Active Substance: UPADACITINIB
     Indication: Rheumatoid arthritis
     Dosage: 15 MILLIGRAM
     Route: 048

REACTIONS (6)
  - Interstitial lung disease [Unknown]
  - Investigation abnormal [Unknown]
  - Lung opacity [Unknown]
  - Femur fracture [Unknown]
  - Red blood cell sedimentation rate increased [Unknown]
  - Fall [Unknown]
